FAERS Safety Report 21163358 (Version 2)
Quarter: 2022Q3

REPORT INFORMATION
  Report Type: Spontaneous
  Country: CN (occurrence: CN)
  Receive Date: 20220802
  Receipt Date: 20220804
  Transmission Date: 20221026
  Serious: Yes (Other)
  Sender: FDA-Public Use
  Company Number: CN-009507513-2208CHN000937

PATIENT
  Age: 8 Year
  Sex: Female
  Weight: 23.5 kg

DRUGS (6)
  1. NOXAFIL [Suspect]
     Active Substance: POSACONAZOLE
     Indication: Acute lymphocytic leukaemia recurrent
     Dosage: DOSE: 2.3 ML, FREQUENCY: 3 TIMES A DAY
     Route: 048
     Dates: start: 20220701, end: 20220706
  2. NOXAFIL [Suspect]
     Active Substance: POSACONAZOLE
     Dosage: 3.2 MILLILITER, QID
     Route: 048
     Dates: start: 20220706, end: 20220715
  3. CILASTATIN SODIUM\IMIPENEM [Suspect]
     Active Substance: CILASTATIN SODIUM\IMIPENEM
     Indication: Acute lymphocytic leukaemia recurrent
     Dosage: DOSE: 320 MG, FREQUENCY: EVERY 6 HOURS (Q6H)
     Route: 041
     Dates: start: 20220706, end: 20220715
  4. MOLGRAMOSTIM [Suspect]
     Active Substance: MOLGRAMOSTIM
     Indication: Acute lymphocytic leukaemia recurrent
     Dosage: DOSE: 100 MICROGRAM, FREQUENCY: ONCE DAILY
     Route: 041
     Dates: start: 20220706, end: 20220713
  5. SODIUM CHLORIDE [Concomitant]
     Active Substance: SODIUM CHLORIDE
     Indication: Acute lymphocytic leukaemia recurrent
     Dosage: DOSE: 70 ML, FREQUENCY: Q6H
     Route: 041
     Dates: start: 20220706, end: 20220706
  6. SODIUM CHLORIDE [Concomitant]
     Active Substance: SODIUM CHLORIDE
     Dosage: DOSE: 100 ML, FREQUENCY: ONCE DAILY
     Route: 041
     Dates: start: 20220706, end: 20220713

REACTIONS (3)
  - Liver injury [Recovering/Resolving]
  - Product use issue [Unknown]
  - Incorrect dose administered [Unknown]

NARRATIVE: CASE EVENT DATE: 20220701
